FAERS Safety Report 6724837-9 (Version None)
Quarter: 2010Q2

REPORT INFORMATION
  Report Type: 
  Country: None (occurrence: None)
  Receive Date: 20100513
  Receipt Date: 20100513
  Transmission Date: 20101027
  Serious: Yes (Hospitalization)
  Sender: FDA-Public Use
  Company Number: None

PATIENT
  Age: 67 Year
  Sex: Female
  Weight: 88.4514 kg

DRUGS (1)
  1. FOSAMAX [Suspect]
     Indication: BONE DISORDER
     Dosage: 70 MG WEEKLY PO, NINE PLUS YEARS
     Route: 048

REACTIONS (1)
  - STRESS FRACTURE [None]
